FAERS Safety Report 4712388-2 (Version None)
Quarter: 2005Q3

REPORT INFORMATION
  Report Type: 
  Country: None (occurrence: None)
  Receive Date: 20050711
  Receipt Date: 20050701
  Transmission Date: 20060218
  Serious: Yes (Other)
  Sender: FDA-Public Use
  Company Number: 2005-07-0012

PATIENT
  Age: 40 Year
  Sex: Female

DRUGS (1)
  1. VIRAFERONPEG [Suspect]
     Dosage: SUBCUTANEOUS
     Route: 058

REACTIONS (2)
  - CHORIOMENINGITIS LYMPHOCYTIC [None]
  - DEAFNESS BILATERAL [None]
